FAERS Safety Report 8509016-7 (Version None)
Quarter: 2012Q3

REPORT INFORMATION
  Report Type: 
  Country: None (occurrence: None)
  Receive Date: 20120713
  Receipt Date: 20120703
  Transmission Date: 20120928
  Serious: Yes (Other)
  Sender: FDA-Public Use
  Company Number: US-ABBOTT-12P-163-0893536-00

PATIENT
  Sex: Female
  Weight: 106.69 kg

DRUGS (12)
  1. HUMIRA [Suspect]
     Indication: RHEUMATOID ARTHRITIS
     Dates: start: 20111014, end: 20120201
  2. FOLIC ACID [Concomitant]
     Indication: PRODUCT USED FOR UNKNOWN INDICATION
  3. AMBIEN [Concomitant]
     Indication: PRODUCT USED FOR UNKNOWN INDICATION
     Dosage: AT BEDTIME
  4. HYDROCODONE BITARTRATE [Concomitant]
     Indication: PAIN
     Dosage: 10/500MG AS REQUIRED
  5. PROZAC [Concomitant]
     Indication: DEPRESSION
     Dosage: DAILY
  6. GABAPENTIN [Concomitant]
     Indication: NEUROPATHY PERIPHERAL
  7. METHOTREXATE [Concomitant]
     Indication: PRODUCT USED FOR UNKNOWN INDICATION
     Dosage: 5 IN MORNING, 5 IN EVENING, ON FRIDAYS
  8. NEURONTIN [Concomitant]
     Indication: PRODUCT USED FOR UNKNOWN INDICATION
  9. ZANTAC [Concomitant]
     Indication: DYSPEPSIA
  10. NAPROXEN [Concomitant]
     Indication: PRODUCT USED FOR UNKNOWN INDICATION
  11. ATIVAN [Concomitant]
     Indication: PRODUCT USED FOR UNKNOWN INDICATION
     Dosage: AS REQUIRED
  12. ZYRTEC [Concomitant]
     Indication: HYPERSENSITIVITY
     Dosage: DAILY

REACTIONS (8)
  - FOOT DEFORMITY [None]
  - DRUG INEFFECTIVE [None]
  - HYPOAESTHESIA [None]
  - WOUND INFECTION STAPHYLOCOCCAL [None]
  - PAIN [None]
  - STAPHYLOCOCCAL INFECTION [None]
  - NEUROPATHY PERIPHERAL [None]
  - ARTHRALGIA [None]
